FAERS Safety Report 8440168-3 (Version None)
Quarter: 2012Q2

REPORT INFORMATION
  Report Type: 
  Country: None (occurrence: None)
  Receive Date: 20120615
  Receipt Date: 20120614
  Transmission Date: 20120825
  Serious: Yes (Death)
  Sender: FDA-Public Use
  Company Number: US-ROCHE-1037581

PATIENT
  Sex: Female

DRUGS (1)
  1. ZELBORAF [Suspect]
     Indication: PRODUCT USED FOR UNKNOWN INDICATION
     Route: 065

REACTIONS (9)
  - ASTHENIA [None]
  - MASS [None]
  - OEDEMA PERIPHERAL [None]
  - CRYING [None]
  - DIARRHOEA [None]
  - DECREASED APPETITE [None]
  - DEATH [None]
  - FATIGUE [None]
  - ARTHRALGIA [None]
